FAERS Safety Report 8241948-X (Version None)
Quarter: 2012Q1

REPORT INFORMATION
  Report Type: 
  Country: None (occurrence: None)
  Receive Date: 20120329
  Receipt Date: 20120321
  Transmission Date: 20120608
  Serious: Yes (Hospitalization)
  Sender: FDA-Public Use
  Company Number: US-BIOGENIDEC-2011BI017599

PATIENT
  Age: 63 Year
  Sex: Female

DRUGS (5)
  1. TYSABRI [Suspect]
     Indication: MULTIPLE SCLEROSIS
     Route: 042
     Dates: start: 20080616
  2. METOPROLOL SUCCINATE [Concomitant]
  3. AMPYRA [Concomitant]
     Indication: GAIT DISTURBANCE
     Dates: start: 20100201
  4. FENTANYL [Concomitant]
  5. AMBIEN CR [Concomitant]

REACTIONS (2)
  - OSTEOARTHRITIS [None]
  - FALL [None]
